FAERS Safety Report 25615709 (Version 1)
Quarter: 2025Q3

REPORT INFORMATION
  Report Type: Spontaneous
  Country: US (occurrence: US)
  Receive Date: 20250729
  Receipt Date: 20250729
  Transmission Date: 20251021
  Serious: No
  Sender: TOLMAR
  Company Number: US-Tolmar-TLM-2025-04331

PATIENT
  Age: 9 Year
  Sex: Female

DRUGS (5)
  1. FENSOLVI [Suspect]
     Active Substance: LEUPROLIDE ACETATE
     Indication: Precocious puberty
     Route: 065
     Dates: start: 20250703
  2. FENSOLVI [Suspect]
     Active Substance: LEUPROLIDE ACETATE
     Route: 065
  3. FENSOLVI [Suspect]
     Active Substance: LEUPROLIDE ACETATE
     Route: 065
  4. DEVICE [Suspect]
     Active Substance: DEVICE
     Indication: Precocious puberty
  5. LUPRON DEPOT-PED [Concomitant]
     Active Substance: LEUPROLIDE ACETATE
     Indication: Product used for unknown indication

REACTIONS (4)
  - Product administration error [Unknown]
  - Syringe issue [Unknown]
  - Incorrect dose administered [Unknown]
  - Crying [Unknown]

NARRATIVE: CASE EVENT DATE: 20250703
